FAERS Safety Report 24185379 (Version 3)
Quarter: 2024Q3

REPORT INFORMATION
  Report Type: Spontaneous
  Country: DE (occurrence: DE)
  Receive Date: 20240807
  Receipt Date: 20240827
  Transmission Date: 20241017
  Serious: Yes (Other)
  Sender: BOEHRINGER INGELHEIM
  Company Number: DE-BoehringerIngelheim-2024-BI-044098

PATIENT
  Sex: Female

DRUGS (2)
  1. TELMISARTAN [Suspect]
     Active Substance: TELMISARTAN
     Indication: Product used for unknown indication
  2. TELMISARTAN [Suspect]
     Active Substance: TELMISARTAN

REACTIONS (5)
  - Atrial fibrillation [Unknown]
  - Cardiac failure [Unknown]
  - Arrhythmia [Unknown]
  - Hypertension [Unknown]
  - Product availability issue [Unknown]
